FAERS Safety Report 8130220-4 (Version None)
Quarter: 2012Q1

REPORT INFORMATION
  Report Type: 
  Country: None (occurrence: None)
  Receive Date: 20120210
  Receipt Date: 20120130
  Transmission Date: 20120608
  Serious: Yes (Other)
  Sender: FDA-Public Use
  Company Number: PHHY2011BR72812

PATIENT
  Sex: Female
  Weight: 75 kg

DRUGS (2)
  1. METHERGINE [Suspect]
     Indication: LOCHIAL INFECTION
     Dosage: 1 DF, BID (1 TAB IN THE MORNING AND 1 TAB IN THE AFTERNOON)
     Route: 048
     Dates: start: 20110808
  2. METHERGINE [Suspect]
     Indication: UTERINE HAEMORRHAGE
     Dosage: 1 DF, BID
     Route: 048
     Dates: start: 20120126

REACTIONS (15)
  - BACK PAIN [None]
  - PYREXIA [None]
  - LOCALISED OEDEMA [None]
  - UTERINE HYPERTONUS [None]
  - FOETAL DISORDER [None]
  - HYPERHIDROSIS [None]
  - BLOOD PRESSURE INCREASED [None]
  - FEELING HOT [None]
  - ABDOMINAL PAIN [None]
  - ABDOMINAL DISCOMFORT [None]
  - VAGINAL DISCHARGE [None]
  - MATERNAL EXPOSURE DURING PREGNANCY [None]
  - HAEMORRHAGE [None]
  - THIRST [None]
  - MALAISE [None]
